FAERS Safety Report 5995178-2 (Version None)
Quarter: 2008Q4

REPORT INFORMATION
  Report Type: 
  Country: None (occurrence: None)
  Receive Date: 20081212
  Receipt Date: 20081209
  Transmission Date: 20090506
  Serious: Yes (Death, Hospitalization)
  Sender: FDA-Public Use
  Company Number: IT-AVENTIS-200820775GDDC

PATIENT
  Sex: Male

DRUGS (9)
  1. TAXOTERE [Suspect]
     Route: 042
     Dates: start: 20081031, end: 20081031
  2. CISPLATIN [Suspect]
     Dates: start: 20081031, end: 20081031
  3. PANTORC [Concomitant]
     Dates: end: 20081107
  4. KYTRIL                             /01178101/ [Concomitant]
     Dates: end: 20081107
  5. DEXAMETHASONE SODIUM [Concomitant]
     Dates: end: 20081107
  6. IRINOTECAN HCL [Concomitant]
     Dosage: DOSE: UNK
     Dates: start: 20080721, end: 20080918
  7. FLUOROURACIL [Concomitant]
     Dosage: DOSE: UNK
     Dates: start: 20080721, end: 20080918
  8. LEUCOVORINE [Concomitant]
     Dosage: DOSE: UNK
     Dates: start: 20080721, end: 20080918
  9. GLUCOPHAGE [Concomitant]

REACTIONS (4)
  - DIARRHOEA [None]
  - METABOLIC ACIDOSIS [None]
  - SHOCK [None]
  - VOMITING [None]
